FAERS Safety Report 6417057-9 (Version None)
Quarter: 2009Q4

REPORT INFORMATION
  Report Type: 
  Country: None (occurrence: None)
  Receive Date: 20091028
  Receipt Date: 20091023
  Transmission Date: 20100525
  Serious: Yes (Hospitalization)
  Sender: FDA-Public Use
  Company Number: US-BIOGENIDEC-2009BI005079

PATIENT
  Age: 67 Year
  Sex: Female
  Weight: 78 kg

DRUGS (2)
  1. TYSABRI [Suspect]
     Indication: MULTIPLE SCLEROSIS
     Route: 042
     Dates: start: 20090112, end: 20090903
  2. MEDICATION (NOS) [Concomitant]

REACTIONS (13)
  - ABDOMINAL DISTENSION [None]
  - ANXIETY [None]
  - BLADDER DISORDER [None]
  - CONFUSIONAL STATE [None]
  - DEPRESSED MOOD [None]
  - DIZZINESS [None]
  - MENTAL STATUS CHANGES [None]
  - MULTIPLE SCLEROSIS RELAPSE [None]
  - MUSCULAR WEAKNESS [None]
  - PRURITUS [None]
  - SWELLING [None]
  - URINARY TRACT INFECTION [None]
  - VULVOVAGINAL PRURITUS [None]
